FAERS Safety Report 23232796 (Version 1)
Quarter: 2023Q4

REPORT INFORMATION
  Report Type: Report from Study
  Country: ZA (occurrence: ZA)
  Receive Date: 20231128
  Receipt Date: 20231128
  Transmission Date: 20240110
  Serious: Yes (Death, Hospitalization)
  Sender: FDA-Public Use
  Company Number: ZA-AMGEN-ZAFSL2023209014

PATIENT
  Age: 69 Year
  Sex: Female

DRUGS (1)
  1. ARANESP [Suspect]
     Active Substance: DARBEPOETIN ALFA
     Indication: Chronic kidney disease
     Dosage: 100 MICROGRAM, QWK
     Route: 065
     Dates: start: 20160916, end: 20230531

REACTIONS (3)
  - Cellulitis [Fatal]
  - Septic shock [Fatal]
  - Cardiac failure [Fatal]
